FAERS Safety Report 4894870-0 (Version None)
Quarter: 2006Q1

REPORT INFORMATION
  Report Type: 
  Country: None (occurrence: None)
  Receive Date: 20060130
  Receipt Date: 20060118
  Transmission Date: 20060701
  Serious: Yes (Life-Threatening)
  Sender: FDA-Public Use
  Company Number: JP-BRISTOL-MYERS SQUIBB COMPANY-13256037

PATIENT
  Age: 35 Year
  Sex: Female

DRUGS (5)
  1. GATIFLOXACIN [Suspect]
     Indication: BRONCHITIS
     Route: 048
     Dates: start: 20051015, end: 20051020
  2. GATIFLOXACIN [Suspect]
     Indication: ACUTE TONSILLITIS
     Route: 048
     Dates: start: 20051015, end: 20051020
  3. SEDIEL [Concomitant]
     Route: 048
     Dates: start: 20030101
  4. ANAFRANIL [Concomitant]
     Dates: start: 20030101
  5. CERCINE [Concomitant]
     Dates: start: 20030101

REACTIONS (1)
  - ELECTROCARDIOGRAM QT PROLONGED [None]
